FAERS Safety Report 8354293-9 (Version None)
Quarter: 2012Q2

REPORT INFORMATION
  Report Type: 
  Country: None (occurrence: None)
  Receive Date: 20120511
  Receipt Date: 20120430
  Transmission Date: 20120825
  Serious: Yes (Hospitalization, Other)
  Sender: FDA-Public Use
  Company Number: GB-JNJFOC-20120501905

PATIENT
  Sex: Female

DRUGS (1)
  1. REMICADE [Suspect]
     Indication: CROHN'S DISEASE
     Route: 042

REACTIONS (4)
  - HEPATIC INFARCTION [None]
  - ATRIAL FIBRILLATION [None]
  - SPLENIC VEIN THROMBOSIS [None]
  - LOWER RESPIRATORY TRACT INFECTION [None]
